FAERS Safety Report 10151837 (Version 1)
Quarter: 2014Q2

REPORT INFORMATION
  Report Type: Spontaneous
  Country: None (occurrence: ES)
  Receive Date: 20140505
  Receipt Date: 20140505
  Transmission Date: 20141212
  Serious: Yes (Hospitalization)
  Sender: FDA-Public Use
  Company Number: ES-ACCORD-023425

PATIENT
  Age: 19 Year
  Sex: Female

DRUGS (3)
  1. MYCOPHENOLIC ACID [Suspect]
     Indication: LUPUS NEPHRITIS
  2. MYFORTIC NOVARTIS [Suspect]
     Indication: LUPUS NEPHRITIS
  3. CYCLOPHOSPHAMIDE/CYCLOPHOSPHAMIDE MONOHYDRATE [Concomitant]
     Indication: LUPUS NEPHRITIS

REACTIONS (12)
  - Systemic lupus erythematosus [Recovered/Resolved]
  - Abdominal discomfort [Unknown]
  - Off label use [Unknown]
  - Treatment noncompliance [Unknown]
  - Pyrexia [None]
  - Polyserositis [None]
  - Pancytopenia [None]
  - Proteinuria [None]
  - Vasculitis [None]
  - Renal impairment [None]
  - Weight increased [None]
  - Drug administration error [None]
